FAERS Safety Report 4765891-3 (Version None)
Quarter: 2005Q3

REPORT INFORMATION
  Report Type: 
  Country: None (occurrence: None)
  Receive Date: 20050906
  Receipt Date: 20050826
  Transmission Date: 20060218
  Serious: Yes (Hospitalization)
  Sender: FDA-Public Use
  Company Number: 2005AD000094

PATIENT
  Age: 43 Year
  Sex: Female

DRUGS (3)
  1. CEPHALEXIN [Suspect]
  2. SERETIDE    ALLEN + HANBURYS LTD [Concomitant]
  3. ALBUTEROL SULFATE HFA [Concomitant]

REACTIONS (4)
  - ALCOHOL USE [None]
  - HALLUCINATION, VISUAL [None]
  - PARANOIA [None]
  - PSYCHOTIC DISORDER [None]
